FAERS Safety Report 9264019 (Version 1)
Quarter: 2013Q2

REPORT INFORMATION
  Report Type: Report from Study
  Country: NL (occurrence: NL)
  Receive Date: 20130430
  Receipt Date: 20130430
  Transmission Date: 20140414
  Serious: Yes (Hospitalization)
  Sender: FDA-Public Use
  Company Number: NL-ABBOTT-13P-114-1060337-00

PATIENT
  Age: 1 Year
  Sex: Female
  Weight: 9.6 kg

DRUGS (5)
  1. SYNAGIS [Suspect]
     Indication: HEART DISEASE CONGENITAL
     Dosage: BODY WEIGHT
     Route: 030
     Dates: start: 20120920, end: 20120920
  2. SYNAGIS [Suspect]
     Dates: start: 20130206, end: 20130206
  3. SYNAGIS [Suspect]
     Dates: start: 20130306, end: 20130306
  4. SYNAGIS [Suspect]
     Dates: start: 20130424, end: 20130424
  5. SYNAGIS [Suspect]
     Dates: start: 20130426

REACTIONS (6)
  - Pyrexia [Recovered/Resolved]
  - Viral infection [Recovered/Resolved]
  - Respiratory tract infection [Recovered/Resolved]
  - Febrile convulsion [Recovered/Resolved]
  - Pyrexia [Recovered/Resolved]
  - Laryngitis [Recovered/Resolved]
